FAERS Safety Report 14175684 (Version 2)
Quarter: 2017Q4

REPORT INFORMATION
  Report Type: Spontaneous
  Country: FI (occurrence: FI)
  Receive Date: 20171109
  Receipt Date: 20171201
  Transmission Date: 20180321
  Serious: Yes (Other)
  Sender: FDA-Public Use
  Company Number: PHHY2017FI159597

PATIENT
  Sex: Female
  Weight: 3.15 kg

DRUGS (4)
  1. TRILEPTAL [Suspect]
     Active Substance: OXCARBAZEPINE
     Indication: EXPOSURE DURING BREAST FEEDING
     Dosage: (MOTHER DOSE: 900 MG QD )
     Route: 063
  2. ORTHO EVRA [Interacting]
     Active Substance: ETHINYL ESTRADIOL\NORELGESTROMIN
     Indication: EXPOSURE DURING BREAST FEEDING
     Dosage: UNK
     Route: 063
  3. KEPPRA [Concomitant]
     Active Substance: LEVETIRACETAM
     Indication: EXPOSURE DURING BREAST FEEDING
     Dosage: (MOTHER DOSE 2500 MG QD)
     Route: 063
  4. KEPPRA [Concomitant]
     Active Substance: LEVETIRACETAM
     Dosage: (MOTHER DOSE: 1700 MG (1500 MG + 200 MG)
     Route: 063

REACTIONS (2)
  - Exposure during breast feeding [Unknown]
  - Skin sensitisation [Not Recovered/Not Resolved]
